FAERS Safety Report 22806963 (Version 3)
Quarter: 2023Q4

REPORT INFORMATION
  Report Type: Spontaneous
  Country: JP (occurrence: JP)
  Receive Date: 20230810
  Receipt Date: 20231108
  Transmission Date: 20240109
  Serious: Yes (Other)
  Sender: FDA-Public Use
  Company Number: JP-ONO-2023JP020098

PATIENT
  Age: 7 Decade

DRUGS (1)
  1. OPDIVO [Suspect]
     Active Substance: NIVOLUMAB
     Indication: Head and neck cancer
     Route: 041

REACTIONS (3)
  - Stomatitis haemorrhagic [Unknown]
  - Cheilitis [Unknown]
  - Erythema [Recovered/Resolved]
